FAERS Safety Report 10646878 (Version 1)
Quarter: 2014Q4

REPORT INFORMATION
  Report Type: Spontaneous
  Country: US (occurrence: US)
  Receive Date: 20141211
  Receipt Date: 20141211
  Transmission Date: 20150529
  Serious: No
  Sender: FDA-Public Use
  Company Number: US-TEVA-526431USA

PATIENT
  Sex: Female

DRUGS (1)
  1. COPAXONE [Suspect]
     Active Substance: GLATIRAMER ACETATE
     Indication: MULTIPLE SCLEROSIS
     Dates: start: 20101021

REACTIONS (4)
  - Insomnia [Unknown]
  - Muscle spasms [Unknown]
  - Central nervous system lesion [Unknown]
  - Injection site reaction [Unknown]

NARRATIVE: CASE EVENT DATE: 2012
